FAERS Safety Report 15197083 (Version 2)
Quarter: 2018Q3

REPORT INFORMATION
  Report Type: Spontaneous
  Country: FR (occurrence: FR)
  Receive Date: 20180725
  Receipt Date: 20180823
  Transmission Date: 20181010
  Serious: Yes (Hospitalization)
  Sender: FDA-Public Use
  Company Number: FR-FERRINGPH-2018FE03344

PATIENT

DRUGS (6)
  1. MINIRIN [Suspect]
     Active Substance: DESMOPRESSIN ACETATE
     Dosage: 6 DF, DAILY
     Route: 045
     Dates: start: 1987
  2. STILNOX [Concomitant]
     Active Substance: ZOLPIDEM TARTRATE
     Dosage: 10 MG AT BEDTIME
     Route: 048
     Dates: start: 1994
  3. MINIRIN [Suspect]
     Active Substance: DESMOPRESSIN ACETATE
     Indication: DIABETES INSIPIDUS
     Dosage: 10 DF, DAILY
     Route: 045
     Dates: start: 20180606
  4. HYDROCORTISONE. [Concomitant]
     Active Substance: HYDROCORTISONE
     Dosage: 10 MG IN THE MORNING AND 10 MG IN THE EVENING
     Route: 048
  5. EUTHYROX [Concomitant]
     Active Substance: LEVOTHYROXINE SODIUM
     Dosage: 112.5 ?G IN THE EVENING
     Route: 048
  6. MINIRIN [Suspect]
     Active Substance: DESMOPRESSIN ACETATE
     Dosage: 8 DF, DAILY
     Route: 045

REACTIONS (5)
  - Polyuria [Recovering/Resolving]
  - Thirst [Recovering/Resolving]
  - Product quality issue [Unknown]
  - Drug ineffective [Unknown]
  - Urine output increased [Recovering/Resolving]

NARRATIVE: CASE EVENT DATE: 20180528
